FAERS Safety Report 8849141 (Version 5)
Quarter: 2013Q3

REPORT INFORMATION
  Report Type: Spontaneous
  Country: GR (occurrence: GR)
  Receive Date: 20121019
  Receipt Date: 20130819
  Transmission Date: 20140515
  Serious: Yes (Hospitalization, Other)
  Sender: FDA-Public Use
  Company Number: GR-AMGEN-GRCSP2012066295

PATIENT
  Age: 70 Year
  Sex: Female

DRUGS (4)
  1. PROLIA [Suspect]
     Indication: OSTEOPOROSIS
     Dosage: 60 MG, Q6MO
     Route: 065
     Dates: start: 20121009
  2. NEXIUM                             /01479302/ [Concomitant]
     Dosage: 1 DF, QD
  3. URESAN                             /00022001/ [Concomitant]
     Dosage: UNK UNK, QD
  4. ANTIHYPERTENSIVES [Concomitant]

REACTIONS (3)
  - Rhabdomyolysis [Recovered/Resolved]
  - Blood creatine phosphokinase increased [Unknown]
  - Myalgia [Unknown]
